FAERS Safety Report 16276583 (Version 1)
Quarter: 2019Q2

REPORT INFORMATION
  Report Type: Spontaneous
  Country: US (occurrence: US)
  Receive Date: 20190505
  Receipt Date: 20190505
  Transmission Date: 20190711
  Serious: No
  Sender: FDA-Public Use
  Company Number: None

PATIENT
  Age: 30 Year
  Sex: Female
  Weight: 59.4 kg

DRUGS (4)
  1. FLUOXETINE 10MG CAPSULES [Suspect]
     Active Substance: FLUOXETINE HYDROCHLORIDE
     Indication: DEPRESSION
     Dosage: ?          QUANTITY:1 CAPSULE(S);?
     Route: 048
     Dates: start: 20190326, end: 20190426
  2. MELATONIN [Concomitant]
     Active Substance: MELATONIN
  3. LORYNA BIRTH CONTROL [Concomitant]
  4. MAGNESIUM [Concomitant]
     Active Substance: MAGNESIUM

REACTIONS (14)
  - Insomnia [None]
  - Pyrexia [None]
  - Restlessness [None]
  - Heart rate increased [None]
  - Malaise [None]
  - Anxiety [None]
  - Bruxism [None]
  - Muscle spasms [None]
  - Dyskinesia [None]
  - Muscle twitching [None]
  - Muscle tightness [None]
  - Panic attack [None]
  - Confusional state [None]
  - Fatigue [None]

NARRATIVE: CASE EVENT DATE: 20190402
